FAERS Safety Report 7154241-3 (Version None)
Quarter: 2010Q4

REPORT INFORMATION
  Report Type: 
  Country: None (occurrence: None)
  Receive Date: 20101213
  Receipt Date: 20101201
  Transmission Date: 20110411
  Serious: Yes (Other)
  Sender: FDA-Public Use
  Company Number: US-ROCHE-722569

PATIENT
  Sex: Male
  Weight: 54.4 kg

DRUGS (2)
  1. ACCUTANE [Suspect]
     Indication: ACNE
     Route: 065
     Dates: start: 19970201
  2. ACCUTANE [Suspect]
     Route: 065
     Dates: end: 20050801

REACTIONS (3)
  - COLITIS ULCERATIVE [None]
  - INFLAMMATORY BOWEL DISEASE [None]
  - SUICIDAL IDEATION [None]
